FAERS Safety Report 6060395-2 (Version None)
Quarter: 2009Q1

REPORT INFORMATION
  Report Type: 
  Country: None (occurrence: None)
  Receive Date: 20090127
  Receipt Date: 20090127
  Transmission Date: 20090719
  Serious: Yes (Hospitalization)
  Sender: FDA-Public Use
  Company Number: None

PATIENT
  Age: 52 Year
  Sex: Female
  Weight: 74.8435 kg

DRUGS (2)
  1. SORAFENIB [Suspect]
     Indication: GLIOMA
     Dosage: 200 MG/BID
     Dates: start: 20080615, end: 20080727
  2. TEMOZOLOMIDE [Suspect]
     Dosage: 75 MG/BID
     Dates: start: 20080615, end: 20080627

REACTIONS (5)
  - ABASIA [None]
  - ARTHROPATHY [None]
  - DYSSTASIA [None]
  - FALL [None]
  - MUSCULAR WEAKNESS [None]
